FAERS Safety Report 10067573 (Version 1)
Quarter: 2014Q2

REPORT INFORMATION
  Report Type: Spontaneous
  Country: US (occurrence: None)
  Receive Date: 20140407
  Receipt Date: 20140407
  Transmission Date: 20141212
  Serious: Yes (Hospitalization)
  Sender: FDA-Public Use
  Company Number: 2013-US-004859

PATIENT
  Sex: Male

DRUGS (3)
  1. XYREM [Suspect]
     Indication: NARCOLEPSY
     Dosage: FIRST DOSE
     Route: 048
     Dates: start: 201106, end: 2011
  2. XYREM [Suspect]
     Indication: CATAPLEXY
     Dosage: FIRST DOSE
     Route: 048
     Dates: start: 201106, end: 2011
  3. OXYCODONE (OXYCODONE HYDROCHLORIDE) (OXYCODONE) [Concomitant]

REACTIONS (11)
  - Abnormal behaviour [None]
  - Cognitive disorder [None]
  - Tremor [None]
  - Apnoea [None]
  - Muscle spasms [None]
  - Agitation [None]
  - Muscle atrophy [None]
  - Gastrooesophageal reflux disease [None]
  - Dyspnoea [None]
  - Weight decreased [None]
  - Headache [None]
